FAERS Safety Report 9657101 (Version 2)
Quarter: 2014Q1

REPORT INFORMATION
  Report Type: Report from Study
  Country: US (occurrence: US)
  Receive Date: 20131030
  Receipt Date: 20140120
  Transmission Date: 20141002
  Serious: Yes (Other)
  Sender: FDA-Public Use
  Company Number: US-ABBVIE-13P-163-1159676-00

PATIENT
  Age: 63 Year
  Sex: Female
  Weight: 71.73 kg

DRUGS (12)
  1. HUMIRA [Suspect]
     Indication: RHEUMATOID ARTHRITIS
     Route: 058
     Dates: start: 201305
  2. METHOTREXATE [Concomitant]
     Indication: RHEUMATOID ARTHRITIS
     Route: 048
  3. ALDACTONE [Concomitant]
     Indication: PRODUCT USED FOR UNKNOWN INDICATION
  4. CANEDILOL [Concomitant]
     Indication: PRODUCT USED FOR UNKNOWN INDICATION
  5. ERGOCALCIFEROL [Concomitant]
     Indication: PRODUCT USED FOR UNKNOWN INDICATION
  6. FOLIC ACID [Concomitant]
     Indication: PRODUCT USED FOR UNKNOWN INDICATION
  7. GABAPENTIN [Concomitant]
     Indication: PRODUCT USED FOR UNKNOWN INDICATION
  8. LEVOTHYROXINE [Concomitant]
     Indication: PRODUCT USED FOR UNKNOWN INDICATION
  9. LAVOTRIGIE [Concomitant]
     Indication: PRODUCT USED FOR UNKNOWN INDICATION
  10. ONDANSETRAN [Concomitant]
     Indication: PRODUCT USED FOR UNKNOWN INDICATION
  11. CALCIUM + VIT D [Concomitant]
     Indication: PRODUCT USED FOR UNKNOWN INDICATION
  12. TEGRETOL [Concomitant]
     Indication: PRODUCT USED FOR UNKNOWN INDICATION

REACTIONS (3)
  - Benign neoplasm of thyroid gland [Unknown]
  - Neck pain [Unknown]
  - Arthralgia [Not Recovered/Not Resolved]
